FAERS Safety Report 5651229-6 (Version None)
Quarter: 2008Q1

REPORT INFORMATION
  Report Type: 
  Country: None (occurrence: None)
  Receive Date: 20080131
  Receipt Date: 20071213
  Transmission Date: 20080703
  Serious: No
  Sender: FDA-Public Use
  Company Number: US200712003058

PATIENT
  Age: 60 Year
  Sex: Female

DRUGS (6)
  1. BYETTA [Suspect]
     Indication: TYPE 2 DIABETES MELLITUS
     Dosage: 5 UG, 2/D, SUBCUTANEOUS
     Route: 058
     Dates: start: 20071213
  2. EXENATIDE 5MCG PEN, DISPOSABLE DEVICE (EXENATIDE PEN (5MCG)) PEN,DISPO [Concomitant]
  3. ACTOS /USA/ (PIOGLITAZONE HYDROCHLORIDE) [Concomitant]
  4. PREVACID NAPRAPAC (LANSOPRAZOLE, NAPROXEN) [Concomitant]
  5. ATENOLOL [Concomitant]
  6. NAPROSYN [Concomitant]

REACTIONS (2)
  - ABDOMINAL PAIN UPPER [None]
  - TREMOR [None]
